FAERS Safety Report 6154575-5 (Version None)
Quarter: 2009Q2

REPORT INFORMATION
  Report Type: 
  Country: None (occurrence: None)
  Receive Date: 20090414
  Receipt Date: 20090410
  Transmission Date: 20091009
  Serious: Yes (Other)
  Sender: FDA-Public Use
  Company Number: US-ASTRAZENECA-2008UW25909

PATIENT
  Age: 35 Year
  Sex: Female
  Weight: 61.2 kg

DRUGS (4)
  1. SEROQUEL [Suspect]
     Indication: POST-TRAUMATIC STRESS DISORDER
     Dosage: 25-100MG
     Route: 048
     Dates: start: 20050328, end: 20060101
  2. IONAMIN [Concomitant]
     Dates: start: 19910101
  3. DEXATRIM [Concomitant]
     Dates: start: 19900101
  4. HYDROXYCUT [Concomitant]
     Dates: start: 19900101

REACTIONS (5)
  - BLOOD CHOLESTEROL INCREASED [None]
  - BLOOD TRIGLYCERIDES INCREASED [None]
  - DIABETES MELLITUS [None]
  - FATIGUE [None]
  - GASTROINTESTINAL DISORDER [None]
